FAERS Safety Report 24346183 (Version 1)
Quarter: 2024Q3

REPORT INFORMATION
  Report Type: Spontaneous
  Country: US (occurrence: US)
  Receive Date: 20240921
  Receipt Date: 20240921
  Transmission Date: 20241016
  Serious: No
  Sender: AUROBINDO
  Company Number: US-AUROBINDO-AUR-APL-2024-012592

PATIENT
  Age: 80 Year
  Sex: Male
  Weight: 110.22 kg

DRUGS (13)
  1. ALENDRONATE SODIUM [Suspect]
     Active Substance: ALENDRONATE SODIUM
     Indication: Bone density increased
     Dosage: 70 MILLIGRAM, EVERY WEEK
     Route: 048
     Dates: start: 20240102, end: 202402
  2. CLOPIDOGREL [Concomitant]
     Active Substance: CLOPIDOGREL BISULFATE
     Indication: Anticoagulant therapy
     Dosage: UNK
     Route: 065
  3. GLIPIZIDE [Concomitant]
     Active Substance: GLIPIZIDE
     Indication: Renal disorder
     Dosage: UNK
     Route: 065
  4. LOVASTATIN [Concomitant]
     Active Substance: LOVASTATIN
     Indication: Renal disorder
     Dosage: UNK
     Route: 065
  5. LOVASTATIN [Concomitant]
     Active Substance: LOVASTATIN
     Indication: Product used for unknown indication
     Dosage: UNK
     Route: 065
  6. GLIPIZIDE [Concomitant]
     Active Substance: GLIPIZIDE
     Indication: Product used for unknown indication
     Dosage: UNK
     Route: 065
  7. ATENOLOL [Concomitant]
     Active Substance: ATENOLOL
     Indication: Product used for unknown indication
     Dosage: UNK
     Route: 065
  8. PEPCID [Concomitant]
     Active Substance: FAMOTIDINE
     Indication: Product used for unknown indication
     Dosage: UNK (MORNING AND NIGHT)
     Route: 065
  9. CALCIUM [Concomitant]
     Active Substance: CALCIUM
     Indication: Product used for unknown indication
     Dosage: UNK
     Route: 065
  10. VITAMIN B12 [Concomitant]
     Active Substance: CYANOCOBALAMIN
     Indication: Product used for unknown indication
     Dosage: UNK
     Route: 065
  11. VITAMIN D3 [Concomitant]
     Active Substance: CHOLECALCIFEROL
     Indication: Product used for unknown indication
     Dosage: UNK ONCE A DAY
     Route: 065
  12. STOOL SOFTENER (DOCUSATE) [Concomitant]
     Active Substance: DOCUSATE
     Indication: Product used for unknown indication
     Dosage: UNK
     Route: 065
  13. TYLENOL [Concomitant]
     Active Substance: ACETAMINOPHEN
     Indication: Product used for unknown indication
     Dosage: UNK
     Route: 065

REACTIONS (9)
  - Myalgia [Not Recovered/Not Resolved]
  - Peripheral swelling [Recovered/Resolved]
  - Joint swelling [Recovered/Resolved]
  - Alopecia [Recovered/Resolved]
  - Pain [Not Recovered/Not Resolved]
  - Gait disturbance [Not Recovered/Not Resolved]
  - Back pain [Not Recovered/Not Resolved]
  - Pain in extremity [Not Recovered/Not Resolved]
  - Musculoskeletal pain [Not Recovered/Not Resolved]
